FAERS Safety Report 24727656 (Version 1)
Quarter: 2024Q4

REPORT INFORMATION
  Report Type: Spontaneous
  Country: US (occurrence: US)
  Receive Date: 20241212
  Receipt Date: 20241212
  Transmission Date: 20250114
  Serious: No
  Sender: MYLAN
  Company Number: US-MYLANLABS-2024M1109378

PATIENT
  Age: 56 Year
  Sex: Female
  Weight: 62.6 kg

DRUGS (1)
  1. XANAX [Suspect]
     Active Substance: ALPRAZOLAM
     Indication: Product used for unknown indication
     Dosage: 1 MILLIGRAM
     Route: 048
     Dates: start: 202410

REACTIONS (3)
  - Cough [Recovering/Resolving]
  - General physical health deterioration [Recovering/Resolving]
  - Product taste abnormal [Recovering/Resolving]

NARRATIVE: CASE EVENT DATE: 20241101
